FAERS Safety Report 23499226 (Version 2)
Quarter: 2024Q1

REPORT INFORMATION
  Report Type: Spontaneous
  Country: JP (occurrence: JP)
  Receive Date: 20240208
  Receipt Date: 20240319
  Transmission Date: 20240409
  Serious: Yes (Other)
  Sender: FDA-Public Use
  Company Number: JP-TAKEDA-2023TJP006279

PATIENT
  Age: 9 Decade
  Sex: Male

DRUGS (1)
  1. NINLARO [Suspect]
     Active Substance: IXAZOMIB CITRATE
     Indication: Plasma cell myeloma
     Dosage: 2.3 MILLIGRAM, 1/WEEK
     Route: 048
     Dates: start: 20230324

REACTIONS (6)
  - Monoclonal immunoglobulin increased [Not Recovered/Not Resolved]
  - Plasma cell myeloma [Unknown]
  - Light chain analysis increased [Recovering/Resolving]
  - Light chain analysis increased [Not Recovered/Not Resolved]
  - Platelet count decreased [Recovering/Resolving]
  - Therapeutic product effect decreased [Unknown]

NARRATIVE: CASE EVENT DATE: 20230512
